FAERS Safety Report 21381477 (Version 1)
Quarter: 2022Q3

REPORT INFORMATION
  Report Type: Report from Study
  Country: CA (occurrence: CA)
  Receive Date: 20220927
  Receipt Date: 20220927
  Transmission Date: 20221027
  Serious: Yes (Other)
  Sender: FDA-Public Use
  Company Number: CA-GILEAD-2022-0576902

PATIENT
  Age: 63 Year
  Sex: Female

DRUGS (2)
  1. SACITUZUMAB GOVITECAN [Suspect]
     Active Substance: SACITUZUMAB GOVITECAN
     Indication: Triple negative breast cancer
     Dosage: 495 MG
     Route: 042
     Dates: start: 20220324
  2. SACITUZUMAB GOVITECAN [Suspect]
     Active Substance: SACITUZUMAB GOVITECAN
     Dosage: 495 MG
     Route: 042
     Dates: start: 20220706, end: 20220824

REACTIONS (4)
  - Disease progression [Not Recovered/Not Resolved]
  - Neutropenia [Unknown]
  - Urinary tract infection [Not Recovered/Not Resolved]
  - COVID-19 [Unknown]
